FAERS Safety Report 12403106 (Version 1)
Quarter: 2016Q2

REPORT INFORMATION
  Report Type: Spontaneous
  Country: DK (occurrence: DK)
  Receive Date: 20160525
  Receipt Date: 20160525
  Transmission Date: 20160815
  Serious: Yes (Death, Hospitalization)
  Sender: FDA-Public Use
  Company Number: DK-ROCHE-1760214

PATIENT
  Age: 69 Year
  Sex: Male

DRUGS (5)
  1. ONCOVIN [Suspect]
     Active Substance: VINCRISTINE SULFATE
     Indication: LYMPHOMA
     Dosage: 1 MG/ML?02/NOV/2012, 23/NOV/2012, 14/DEC/2012 AND ON 08/JAN/2013
     Route: 065
     Dates: start: 20121012, end: 20130125
  2. MABTHERA [Suspect]
     Active Substance: RITUXIMAB
     Indication: LYMPHOMA
     Dosage: 02/NOV/2012, 23/NOV/2012, 14/DEC/2012 AND ON 08/JAN/2013
     Route: 065
     Dates: start: 20121012, end: 20130429
  3. ADRIAMYCIN [Suspect]
     Active Substance: DOXORUBICIN HYDROCHLORIDE
     Indication: LYMPHOMA
     Dosage: 02/NOV/2012, 23/NOV/2012, 14/DEC/2012 AND ON 08/JAN/2013
     Route: 065
     Dates: start: 20121012, end: 20130125
  4. SENDOXAN [Suspect]
     Active Substance: CYCLOPHOSPHAMIDE
     Indication: LYMPHOMA
     Dosage: 02/NOV/2012, 23/NOV/2012, 14/DEC/2012 AND ON 08/JAN/2013
     Route: 065
     Dates: start: 20121012, end: 20130125
  5. PREDNISONE. [Suspect]
     Active Substance: PREDNISONE
     Indication: LYMPHOMA
     Dosage: 02/NOV/2012, 23/NOV/2012, 14/DEC/2012 AND ON 08/JAN/2013
     Route: 065
     Dates: start: 20121012, end: 20130125

REACTIONS (14)
  - Cardiac failure [Fatal]
  - Dyspnoea [Not Recovered/Not Resolved]
  - Fatigue [Not Recovered/Not Resolved]
  - Asthenia [Not Recovered/Not Resolved]
  - Cardiomegaly [Fatal]
  - Ejection fraction decreased [Fatal]
  - Oedema peripheral [Not Recovered/Not Resolved]
  - Cardiac pacemaker insertion [Not Recovered/Not Resolved]
  - Feeling of body temperature change [Recovered/Resolved]
  - Ascites [Unknown]
  - Abdominal cavity drainage [Unknown]
  - Pleural effusion [Unknown]
  - Pneumonia [Recovered/Resolved]
  - Pyrexia [Recovered/Resolved]

NARRATIVE: CASE EVENT DATE: 20130203
